FAERS Safety Report 7079234-6 (Version None)
Quarter: 2010Q4

REPORT INFORMATION
  Report Type: 
  Country: None (occurrence: None)
  Receive Date: 20101102
  Receipt Date: 20101026
  Transmission Date: 20110411
  Serious: Yes (Hospitalization)
  Sender: FDA-Public Use
  Company Number: US-ROCHE-737187

PATIENT
  Sex: Female

DRUGS (9)
  1. CLONAZEPAM [Suspect]
     Route: 065
  2. LIPITOR [Interacting]
     Dosage: FORM: FILM-COATED TABLET
     Route: 065
  3. DETROL [Interacting]
     Route: 065
  4. CELEXA [Interacting]
     Route: 065
  5. SEROQUEL [Interacting]
     Route: 065
  6. SYNTHROID [Interacting]
     Route: 065
  7. GLYBURIDE [Interacting]
     Route: 065
  8. OXCARBAZEPINE [Interacting]
     Route: 065
  9. ZOLPIDEM [Interacting]
     Route: 065

REACTIONS (2)
  - CONVULSION [None]
  - DRUG INTERACTION [None]
